FAERS Safety Report 11718762 (Version 4)
Quarter: 2016Q2

REPORT INFORMATION
  Report Type: Spontaneous
  Country: DE (occurrence: DE)
  Receive Date: 20151110
  Receipt Date: 20160510
  Transmission Date: 20160815
  Serious: Yes (Life-Threatening, Hospitalization, Disabling, Other)
  Sender: FDA-Public Use
  Company Number: DE-GLAXOSMITHKLINE-DE2015GSK155779

PATIENT
  Age: 30 Year
  Sex: Male

DRUGS (6)
  1. RABIPUR [Suspect]
     Active Substance: RABIES VIRUS STRAIN FLURY LEP ANTIGEN (PROPIOLACTONE INACTIVATED)
     Indication: PROPHYLAXIS
     Route: 030
     Dates: start: 20150526, end: 20150526
  2. RABIPUR [Suspect]
     Active Substance: RABIES VIRUS STRAIN FLURY LEP ANTIGEN (PROPIOLACTONE INACTIVATED)
     Indication: PROPHYLAXIS
     Route: 030
     Dates: start: 20150601, end: 20150601
  3. TWINRIX [Suspect]
     Active Substance: HEPATITIS A VIRUS STRAIN HM175 ANTIGEN (FORMALDEHYDE INACTIVATED)\HEPATITIS B VIRUS SUBTYPE ADW2 HBSAG SURFACE PROTEIN ANTIGEN
     Indication: PROPHYLAXIS
     Route: 030
     Dates: start: 20150601, end: 20150601
  4. DUKORAL [Suspect]
     Active Substance: CHOLERA VACCINE
     Indication: PROPHYLAXIS
     Dosage: UNK
     Route: 048
     Dates: start: 20150526
  5. MALARONE [Suspect]
     Active Substance: ATOVAQUONE\PROGUANIL HYDROCHLORIDE
     Indication: MALARIA PROPHYLAXIS
     Dosage: UNK
     Route: 048
     Dates: start: 20150701, end: 20150712
  6. TYPHIM VI [Suspect]
     Active Substance: SALMONELLA TYPHI TY2 VI POLYSACCHARIDE ANTIGEN
     Indication: PROPHYLAXIS
     Dosage: UNK
     Route: 030
     Dates: start: 20150526

REACTIONS (33)
  - Leukoencephalopathy [Not Recovered/Not Resolved]
  - Headache [Recovered/Resolved]
  - Foaming at mouth [Unknown]
  - Opisthotonus [Unknown]
  - Malaise [Unknown]
  - Quadriparesis [Not Recovered/Not Resolved]
  - Seizure [Unknown]
  - Unresponsive to stimuli [Unknown]
  - Lymphopenia [Unknown]
  - Aggression [Unknown]
  - Hyperhidrosis [Unknown]
  - Urinary tract infection [Unknown]
  - Hypertonia [Unknown]
  - Salivary hypersecretion [Unknown]
  - Influenza like illness [Recovered/Resolved]
  - Nausea [Recovered/Resolved]
  - Asthenia [Unknown]
  - Trismus [Unknown]
  - Depressed mood [Unknown]
  - Acute disseminated encephalomyelitis [Not Recovered/Not Resolved]
  - Pharyngitis [Recovered/Resolved]
  - Fatigue [Unknown]
  - Hypotonia [Unknown]
  - Personality change [Unknown]
  - Disturbance in attention [Unknown]
  - Respiratory distress [Unknown]
  - Pyrexia [Recovered/Resolved]
  - Chills [Unknown]
  - Condition aggravated [Unknown]
  - Restlessness [Unknown]
  - Cough [Unknown]
  - Pleocytosis [Unknown]
  - Hypertension [Unknown]

NARRATIVE: CASE EVENT DATE: 2015
